FAERS Safety Report 25264241 (Version 3)
Quarter: 2025Q2

REPORT INFORMATION
  Report Type: Spontaneous
  Country: US (occurrence: US)
  Receive Date: 20250502
  Receipt Date: 20250512
  Transmission Date: 20250716
  Serious: No
  Sender: LUPIN
  Company Number: US-LUPIN PHARMACEUTICALS INC.-2025-03739

PATIENT
  Age: 81 Year
  Weight: 97.506 kg

DRUGS (1)
  1. AMLODIPINE BESYLATE [Suspect]
     Active Substance: AMLODIPINE BESYLATE
     Indication: Blood pressure abnormal
     Route: 065

REACTIONS (2)
  - Blood pressure increased [Recovering/Resolving]
  - Blood pressure fluctuation [Recovering/Resolving]
